FAERS Safety Report 4473863-1 (Version None)
Quarter: 2004Q4

REPORT INFORMATION
  Report Type: 
  Country: None (occurrence: None)
  Receive Date: 20041008
  Receipt Date: 20041008
  Transmission Date: 20050328
  Serious: Yes (Hospitalization)
  Sender: FDA-Public Use
  Company Number: None

PATIENT
  Age: 62 Year
  Sex: Male
  Weight: 106 kg

DRUGS (2)
  1. HYDROCODONE BITARTRATE + ACETAMINOPHEN [Suspect]
     Indication: OSTEOARTHRITIS
     Dosage: 1 Q8H ORAL
     Route: 048
     Dates: start: 20040929, end: 20040930
  2. TRAMADOL HCL [Concomitant]

REACTIONS (4)
  - FALL [None]
  - HEPATIC FAILURE [None]
  - HEPATOTOXICITY [None]
  - SOMNOLENCE [None]
